FAERS Safety Report 5685760-4 (Version None)
Quarter: 2008Q1

REPORT INFORMATION
  Report Type: 
  Country: None (occurrence: None)
  Receive Date: 20080328
  Receipt Date: 20070828
  Transmission Date: 20080703
  Serious: No
  Sender: FDA-Public Use
  Company Number: US-BAYER-US-2007-032390

PATIENT
  Age: 48 Year
  Sex: Female
  Weight: 93 kg

DRUGS (3)
  1. MIRENA [Suspect]
     Indication: GENITAL HAEMORRHAGE
     Route: 015
     Dates: start: 20070814
  2. SYNTHROID [Concomitant]
     Route: 048
  3. PHENTERMINE [Concomitant]

REACTIONS (5)
  - ABDOMINAL PAIN LOWER [None]
  - BACK PAIN [None]
  - DYSPNOEA [None]
  - IUCD COMPLICATION [None]
  - NAUSEA [None]
